FAERS Safety Report 9309896 (Version 1)
Quarter: 2013Q2

REPORT INFORMATION
  Report Type: Spontaneous
  Country: US (occurrence: US)
  Receive Date: 20130526
  Receipt Date: 20130526
  Transmission Date: 20140414
  Serious: No
  Sender: FDA-Public Use
  Company Number: US-ASTRAZENECA-2013SE31705

PATIENT
  Age: 54 Year
  Sex: Female
  Weight: 61.2 kg

DRUGS (4)
  1. LISINOPRIL [Suspect]
     Indication: HYPERTENSION
     Route: 048
  2. CRESTOR [Suspect]
     Indication: BLOOD CHOLESTEROL INCREASED
     Route: 048
  3. OMEPRAZOLE [Suspect]
     Indication: DYSPEPSIA
     Route: 048
  4. HCTZ [Concomitant]
     Indication: HYPERTENSION
     Route: 048

REACTIONS (7)
  - Eosinophilic oesophagitis [Unknown]
  - Food allergy [Not Recovered/Not Resolved]
  - Food allergy [Not Recovered/Not Resolved]
  - Blood cholesterol increased [Unknown]
  - Drug effect incomplete [Unknown]
  - Dyspepsia [Recovering/Resolving]
  - Drug ineffective [Unknown]
